FAERS Safety Report 10618531 (Version 1)
Quarter: 2014Q4

REPORT INFORMATION
  Report Type: Spontaneous
  Country: US (occurrence: US)
  Receive Date: 20141202
  Receipt Date: 20141202
  Transmission Date: 20150529
  Serious: Yes (Hospitalization)
  Sender: FDA-Public Use
  Company Number: US-AMGEN-USASP2014092189

PATIENT
  Age: 58 Year
  Sex: Female

DRUGS (2)
  1. PRILOSEC [Concomitant]
     Active Substance: OMEPRAZOLE MAGNESIUM
     Indication: GASTROOESOPHAGEAL REFLUX DISEASE
  2. PROLIA [Suspect]
     Active Substance: DENOSUMAB
     Indication: OSTEOPOROSIS POSTMENOPAUSAL
     Dosage: UNK
     Route: 065
     Dates: start: 20141013

REACTIONS (6)
  - Asthma [Unknown]
  - Appendicitis [Recovering/Resolving]
  - Appendix disorder [Unknown]
  - Pancreatitis acute [Recovering/Resolving]
  - Gastrooesophageal reflux disease [Unknown]
  - Fibromyalgia [Unknown]
